FAERS Safety Report 4493615-6 (Version None)
Quarter: 2004Q4

REPORT INFORMATION
  Report Type: 
  Country: None (occurrence: None)
  Receive Date: 20041105
  Receipt Date: 20030305
  Transmission Date: 20050328
  Serious: Yes (Hospitalization)
  Sender: FDA-Public Use
  Company Number: 200312217US

PATIENT
  Sex: Female
  Weight: 92 kg

DRUGS (41)
  1. ARAVA [Suspect]
     Indication: RHEUMATOID ARTHRITIS
     Dates: start: 20000429, end: 20020102
  2. METOCLOPRAMIDE [Concomitant]
     Dates: start: 20000401, end: 20010710
  3. PRILOSEC [Concomitant]
     Dates: end: 20010710
  4. LORAZEPAM [Concomitant]
  5. IBUPROFEN [Concomitant]
     Dates: start: 19990701, end: 20000721
  6. NORTRIPTYLINE HCL [Concomitant]
     Dates: end: 20020101
  7. PROPULSID [Concomitant]
     Dates: end: 20000110
  8. HYDROXYCHLOROQUINE SULFATE [Concomitant]
     Dates: end: 20020111
  9. SYNTHROID [Concomitant]
     Route: 048
  10. HISTAVENT DA [Concomitant]
  11. FOLIC ACID [Concomitant]
  12. BIAXIN [Concomitant]
  13. METHOTREXATE [Concomitant]
     Dosage: DOSE: 2.5 X 6
     Dates: start: 19990101, end: 20020101
  14. CLARITIN-D [Concomitant]
     Dates: start: 20020125
  15. LOESTRIN 1.5/30 [Concomitant]
  16. XENICAL [Concomitant]
     Dates: start: 20000601
  17. ACETAMINOPHEN AND HYDROCODONE BITARTRATE [Concomitant]
     Dosage: DOSE: UNK
  18. PREMARIN [Concomitant]
     Route: 048
     Dates: start: 20000701
  19. PANNAZ [Concomitant]
  20. CARBAMAZEPINE [Concomitant]
     Dates: start: 20000915
  21. ULTRAM [Concomitant]
     Dosage: DOSE: 50  Q4-6HPRN
     Dates: start: 20000915
  22. PREDNISONE [Concomitant]
  23. ZITHROMAX [Concomitant]
  24. URSODIOL [Concomitant]
     Route: 048
     Dates: start: 20020118
  25. PROPOXYPHENE [Concomitant]
     Dates: end: 20020101
  26. OMNICEF [Concomitant]
  27. ZYRTEC [Concomitant]
  28. VIOXX [Concomitant]
     Dates: start: 20011205, end: 20020101
  29. TRIAMCINOLONE [Concomitant]
  30. LOTREL [Concomitant]
     Dosage: DOSE: 2.5/10MG
     Route: 048
  31. COMPAZINE [Concomitant]
     Dates: end: 20030101
  32. EXTENDRYL SR [Concomitant]
  33. METHOTREXATE [Concomitant]
     Dates: end: 20000701
  34. AREDIA [Concomitant]
  35. VALPROIC ACID [Concomitant]
  36. METRONIDAZOLE [Concomitant]
     Dates: start: 20011003, end: 20011007
  37. SULFAMETHOXAZOLE + TRIMETHOPRIM [Concomitant]
     Dosage: DOSE: 1 TAB
     Dates: start: 20010913, end: 20010922
  38. CELEBREX [Concomitant]
     Dates: end: 20010901
  39. AVELOX [Concomitant]
     Dates: start: 20010710, end: 20010716
  40. PREVACID [Concomitant]
     Dates: start: 20010705
  41. XENICAL [Concomitant]
     Dates: start: 20000606, end: 20001106

REACTIONS (28)
  - ABDOMINAL PAIN UPPER [None]
  - ADVERSE DRUG REACTION [None]
  - BILIARY CIRRHOSIS PRIMARY [None]
  - BLOOD ALBUMIN DECREASED [None]
  - CEREBROVASCULAR ACCIDENT [None]
  - CHOLELITHIASIS [None]
  - CHROMATURIA [None]
  - DIARRHOEA [None]
  - FATIGUE [None]
  - FIBROSIS [None]
  - GRANULOMA [None]
  - HAEMANGIOMA [None]
  - HEADACHE [None]
  - HEPATIC FAILURE [None]
  - HEPATITIS [None]
  - HEPATOCELLULAR DAMAGE [None]
  - HEPATOTOXICITY [None]
  - HYPERTENSION [None]
  - INFECTION [None]
  - JAUNDICE CHOLESTATIC [None]
  - LABORATORY TEST ABNORMAL [None]
  - MUSCULOSKELETAL STIFFNESS [None]
  - NIGHT SWEATS [None]
  - PHARYNGOLARYNGEAL PAIN [None]
  - PYREXIA [None]
  - SARCOIDOSIS [None]
  - SYSTEMIC LUPUS ERYTHEMATOSUS RASH [None]
  - VISION BLURRED [None]
